FAERS Safety Report 20815491 (Version 1)
Quarter: 2022Q2

REPORT INFORMATION
  Report Type: Spontaneous
  Country: US (occurrence: None)
  Receive Date: 20220511
  Receipt Date: 20220511
  Transmission Date: 20220721
  Serious: Yes (Hospitalization)
  Sender: FDA-Public Use
  Company Number: None

PATIENT
  Age: 60 Year
  Sex: Male

DRUGS (1)
  1. CAPECITABINE [Suspect]
     Active Substance: CAPECITABINE
     Indication: Rectal cancer
     Dosage: DOSE OR AMOUNT/FREQUENCY: TAKE 3 TABLETS BY MOUTH 2 TIMES PER DAY FOR 14 DAYS ON, THEN 7 DAYS OFF?
     Route: 048
     Dates: start: 202111

REACTIONS (3)
  - Ageusia [None]
  - Blood potassium decreased [None]
  - Hypotension [None]

NARRATIVE: CASE EVENT DATE: 20220427
